FAERS Safety Report 12644428 (Version 1)
Quarter: 2016Q3

REPORT INFORMATION
  Report Type: Spontaneous
  Country: BR (occurrence: BR)
  Receive Date: 20160811
  Receipt Date: 20160811
  Transmission Date: 20161109
  Serious: Yes (Death)
  Sender: FDA-Public Use
  Company Number: PHHY2016BR107873

PATIENT
  Age: 46 Year
  Sex: Male

DRUGS (1)
  1. DEFERASIROX [Suspect]
     Active Substance: DEFERASIROX
     Indication: MYELODYSPLASTIC SYNDROME
     Dosage: 20 MG/KG, QD
     Route: 065

REACTIONS (5)
  - Aspergillus infection [Fatal]
  - Graft versus host disease in skin [Fatal]
  - Cytomegalovirus infection [Fatal]
  - Drug ineffective [Unknown]
  - Graft versus host disease in liver [Fatal]
